FAERS Safety Report 5272278-6 (Version None)
Quarter: 2007Q1

REPORT INFORMATION
  Report Type: 
  Country: None (occurrence: None)
  Receive Date: 20070320
  Receipt Date: 20070320
  Transmission Date: 20070707
  Serious: Yes (Hospitalization)
  Sender: FDA-Public Use
  Company Number: None

PATIENT
  Sex: Female
  Weight: 74 kg

DRUGS (4)
  1. CISPLATIN [Suspect]
     Dosage: 91 MG
  2. DOXORUBICIN HYDROCHLORIDE [Suspect]
     Dosage: 82 MG
  3. G-CSF (FILGRASTIM, AMGEN) [Suspect]
  4. TAXOL [Suspect]
     Dosage: 293 MG

REACTIONS (10)
  - BLOOD UREA INCREASED [None]
  - CANDIDIASIS [None]
  - DEHYDRATION [None]
  - FALL [None]
  - FEBRILE NEUTROPENIA [None]
  - GASTRITIS [None]
  - HAEMATOCRIT DECREASED [None]
  - HAEMOGLOBIN DECREASED [None]
  - SYNCOPE [None]
  - WHITE BLOOD CELL COUNT DECREASED [None]
